FAERS Safety Report 21328863 (Version 2)
Quarter: 2022Q4

REPORT INFORMATION
  Report Type: Spontaneous
  Country: US (occurrence: US)
  Receive Date: 20220913
  Receipt Date: 20221124
  Transmission Date: 20230113
  Serious: Yes (Hospitalization, Other)
  Sender: FDA-Public Use
  Company Number: US-PFIZER INC-PV202200062085

PATIENT
  Age: 80 Year
  Sex: Male
  Weight: 75.75 kg

DRUGS (3)
  1. VYNDAMAX [Suspect]
     Active Substance: TAFAMIDIS
     Indication: Amyloidosis
     Dosage: ONE CAPSULE BY MOUTH DAILY
     Route: 048
     Dates: start: 202204
  2. ASPIRIN [Concomitant]
     Active Substance: ASPIRIN
     Dosage: 325 MG
  3. ASPIRIN [Concomitant]
     Active Substance: ASPIRIN
     Dosage: 81 MG

REACTIONS (4)
  - Intraventricular haemorrhage [Recovered/Resolved]
  - Blood glucose increased [Unknown]
  - Hypoacusis [Unknown]
  - Off label use [Unknown]

NARRATIVE: CASE EVENT DATE: 20220821
